FAERS Safety Report 26210692 (Version 1)
Quarter: 2025Q4

REPORT INFORMATION
  Report Type: Spontaneous
  Country: CA (occurrence: CA)
  Receive Date: 20251230
  Receipt Date: 20251230
  Transmission Date: 20260118
  Serious: Yes (Death, Life-Threatening, Hospitalization, Disabling, Congenital Anomaly, Other)
  Sender: Haleon PLC
  Company Number: CA-002147023-NVSC2023CA284241

PATIENT
  Age: 43 Year
  Sex: Female
  Weight: 68 kg

DRUGS (84)
  1. VOLTAREN [Suspect]
     Active Substance: DICLOFENAC SODIUM
     Indication: Product used for unknown indication
     Dosage: UNK, ROUTE: UNKNOWN
  2. MYCOPHENOLATE MOFETIL [Suspect]
     Active Substance: MYCOPHENOLATE MOFETIL
     Indication: Product used for unknown indication
     Dosage: UNK, ROUTE: UNKNOWN
  3. OXYCODONE TEREPHTHALATE [Suspect]
     Active Substance: OXYCODONE TEREPHTHALATE
     Indication: Product used for unknown indication
     Dosage: UNK, ROUTE: UNKNOWN
  4. DICLOFENAC SODIUM [Suspect]
     Active Substance: DICLOFENAC SODIUM
     Indication: Product used for unknown indication
     Dosage: UNK, ROUTE: UNKNOWN
  5. DICLOFENAC SODIUM [Suspect]
     Active Substance: DICLOFENAC SODIUM
     Dosage: 50 MG, ROUTE: UNKNOWN
  6. ADALIMUMAB [Suspect]
     Active Substance: ADALIMUMAB
     Indication: Rheumatoid arthritis
     Dosage: 4 MG
  7. ADALIMUMAB [Suspect]
     Active Substance: ADALIMUMAB
     Dosage: 40 MG
  8. ADALIMUMAB [Suspect]
     Active Substance: ADALIMUMAB
     Dosage: UNK, ROUTE: UNKNOWN
  9. HYDROCORTISONE [Suspect]
     Active Substance: HYDROCORTISONE
     Indication: Rheumatoid arthritis
     Dosage: 25 MG, ROUTE: UNKNOWN
  10. COSENTYX [Suspect]
     Active Substance: SECUKINUMAB
     Indication: Rheumatoid arthritis
     Dosage: UNK (INJECTION NOS), ROUTE: UNKNOWN
  11. COSENTYX [Suspect]
     Active Substance: SECUKINUMAB
     Indication: Psoriatic arthropathy
  12. METHOTREXATE [Suspect]
     Active Substance: METHOTREXATE
     Indication: Rheumatoid arthritis
     Dosage: 25 MG, QW
  13. METHOTREXATE [Suspect]
     Active Substance: METHOTREXATE
     Dosage: 25 MG, Q24H
  14. METHOTREXATE [Suspect]
     Active Substance: METHOTREXATE
     Dosage: UNK UNK, QD
  15. METHOTREXATE [Suspect]
     Active Substance: METHOTREXATE
     Dosage: 25 MG, BID
  16. METHOTREXATE [Suspect]
     Active Substance: METHOTREXATE
     Dosage: UNK, ROUTE: PARENTERAL
  17. METHOTREXATE [Suspect]
     Active Substance: METHOTREXATE
     Dosage: 25 MG
  18. METHOTREXATE [Suspect]
     Active Substance: METHOTREXATE
     Dosage: 15 MG, Q24H
  19. METHOTREXATE [Suspect]
     Active Substance: METHOTREXATE
     Dosage: 20 MG, QD, ROUTE: UNKNOWN
  20. METHOTREXATE [Suspect]
     Active Substance: METHOTREXATE
     Dosage: 1 G, BID
  21. METHOTREXATE [Suspect]
     Active Substance: METHOTREXATE
     Dosage: 25 MG, QW
  22. METHOTREXATE [Suspect]
     Active Substance: METHOTREXATE
     Dosage: 20 MG, Q24H
  23. METHOTREXATE [Suspect]
     Active Substance: METHOTREXATE
     Dosage: 25 MG
  24. METHOTREXATE [Suspect]
     Active Substance: METHOTREXATE
     Dosage: 20 MG, Q24H
  25. METHOTREXATE [Suspect]
     Active Substance: METHOTREXATE
     Dosage: 25 MG
  26. METHOTREXATE [Suspect]
     Active Substance: METHOTREXATE
     Dosage: 1 G, Q24H
  27. METHOTREXATE [Suspect]
     Active Substance: METHOTREXATE
     Dosage: 20 MG, QW
  28. METHOTREXATE [Suspect]
     Active Substance: METHOTREXATE
     Dosage: 25 MG, QW
  29. METHOTREXATE [Suspect]
     Active Substance: METHOTREXATE
     Dosage: 25 MG, Q24H
  30. METHOTREXATE [Suspect]
     Active Substance: METHOTREXATE
     Dosage: 1 DOSAGE FORM, Q24H
  31. METHOTREXATE [Suspect]
     Active Substance: METHOTREXATE
     Dosage: 20 MG, Q12H
  32. METHOTREXATE [Suspect]
     Active Substance: METHOTREXATE
     Dosage: 200 MG
  33. METHOTREXATE [Suspect]
     Active Substance: METHOTREXATE
     Dosage: 25 MG, QW
  34. METHOTREXATE [Suspect]
     Active Substance: METHOTREXATE
     Dosage: 1 G, Q24H
  35. METHOTREXATE [Suspect]
     Active Substance: METHOTREXATE
     Dosage: 25 MG
  36. METHOTREXATE [Suspect]
     Active Substance: METHOTREXATE
     Dosage: 25 MG, ROUTE: UNKNOWN
  37. METHOTREXATE [Suspect]
     Active Substance: METHOTREXATE
     Dosage: UNK, ROUTE: UNKNOWN
  38. METHOTREXATE [Suspect]
     Active Substance: METHOTREXATE
     Dosage: 20 MG, QW, ROUTE: UNKNOWN
  39. METHOTREXATE [Suspect]
     Active Substance: METHOTREXATE
     Dosage: 20 MG, QW
  40. METHOTREXATE [Suspect]
     Active Substance: METHOTREXATE
     Dosage: 1 G, Q12H
  41. METHOTREXATE [Suspect]
     Active Substance: METHOTREXATE
     Dosage: 15.0 UNK, QW
  42. METHOTREXATE [Suspect]
     Active Substance: METHOTREXATE
     Dosage: 25 MG, QW
  43. METHOTREXATE [Suspect]
     Active Substance: METHOTREXATE
     Dosage: 2 DOSAGE FORM, Q24H, ROUTE: UNKNOWN
  44. METHOTREXATE [Suspect]
     Active Substance: METHOTREXATE
     Dosage: UNK
  45. ATOMOXETINE [Suspect]
     Active Substance: ATOMOXETINE
     Indication: Migraine
     Dosage: 1 DOSAGE FORM, QOD, ROUTE: UNKNOWN
  46. QUETIAPINE FUMARATE [Suspect]
     Active Substance: QUETIAPINE FUMARATE
     Indication: Product used for unknown indication
     Dosage: UNK, ROUTE: UNKNOWN
  47. ERELZI [Suspect]
     Active Substance: ETANERCEPT-SZZS
     Indication: Rheumatoid arthritis
     Dosage: UNK
  48. ERELZI [Suspect]
     Active Substance: ETANERCEPT-SZZS
     Dosage: 50 MG, QW, ROUTE: UNKNOWN
  49. RITUXIMAB [Suspect]
     Active Substance: RITUXIMAB
     Indication: Rheumatoid arthritis
     Dosage: UNK
  50. RITUXIMAB [Suspect]
     Active Substance: RITUXIMAB
     Dosage: UNK (CONCENTRATE AND SOLVENT FOR SOLUTION FOR INJECTION), ROUTE: INTRAVENOUS DRIP
  51. RITUXIMAB [Suspect]
     Active Substance: RITUXIMAB
     Dosage: UNK
  52. RITUXIMAB [Suspect]
     Active Substance: RITUXIMAB
     Dosage: UNK, ROUTE: INTRAVESICAL
  53. RITUXIMAB [Suspect]
     Active Substance: RITUXIMAB
     Dosage: UNK, ROUTE: UNKNOWN
  54. RITUXIMAB [Suspect]
     Active Substance: RITUXIMAB
     Dosage: UNK
  55. FOLIC ACID [Suspect]
     Active Substance: FOLIC ACID
     Indication: Rheumatoid arthritis
     Dosage: 1 MG
  56. FOLIC ACID [Suspect]
     Active Substance: FOLIC ACID
     Dosage: 5 MG
  57. FOLIC ACID [Suspect]
     Active Substance: FOLIC ACID
     Dosage: 1 G, ROUTE: UNKNOWN
  58. FOLIC ACID [Suspect]
     Active Substance: FOLIC ACID
     Dosage: 15 MG, ROUTE: UNKNOWN
  59. FOLIC ACID [Suspect]
     Active Substance: FOLIC ACID
     Dosage: UNK, ROUTE: UNKNOWN
  60. FOLIC ACID [Suspect]
     Active Substance: FOLIC ACID
     Dosage: 5 MG, Q24H, ROUTE: UNKNOWN
  61. FOLIC ACID [Suspect]
     Active Substance: FOLIC ACID
     Dosage: 500 MG, ROUTE: UNKNOWN
  62. FOLIC ACID [Suspect]
     Active Substance: FOLIC ACID
     Dosage: 3 MG, ROUTE: UNKNOWN
  63. FOLIC ACID [Suspect]
     Active Substance: FOLIC ACID
     Dosage: 15 MG
  64. FOLIC ACID [Suspect]
     Active Substance: FOLIC ACID
     Dosage: 5 MG, ROUTE: UNKNOWN
  65. FOLIC ACID [Suspect]
     Active Substance: FOLIC ACID
     Dosage: 0.5 MG
  66. FOLIC ACID [Suspect]
     Active Substance: FOLIC ACID
     Dosage: 500 MG
  67. FOLIC ACID [Suspect]
     Active Substance: FOLIC ACID
     Dosage: 25 MG
  68. FOLIC ACID [Suspect]
     Active Substance: FOLIC ACID
     Dosage: 0.5 MG, ROUTE: UNKNOWN
  69. FOLIC ACID [Suspect]
     Active Substance: FOLIC ACID
     Dosage: 1 MG, ROUTE: UNKNOWN
  70. FOLIC ACID [Suspect]
     Active Substance: FOLIC ACID
     Dosage: 50 MG, ROUTE: UNKNOWN
  71. FOLIC ACID [Suspect]
     Active Substance: FOLIC ACID
     Dosage: 1 MG
  72. DICLOFENAC POTASSIUM [Suspect]
     Active Substance: DICLOFENAC POTASSIUM
     Indication: Product used for unknown indication
     Dosage: UNK, ROUTE: UNKNOWN
  73. OXYCODONE HYDROCHLORIDE [Suspect]
     Active Substance: OXYCODONE HYDROCHLORIDE
     Indication: Product used for unknown indication
     Dosage: UNK, ROUTE: UNKNOWN
  74. AIMOVIG [Suspect]
     Active Substance: ERENUMAB-AOOE
     Indication: Migraine
     Dosage: UNK, ROUTE: UNKNOWN
  75. DICLOFENAC POTASSIUM [Suspect]
     Active Substance: DICLOFENAC POTASSIUM
     Indication: Product used for unknown indication
     Dosage: 50 MG, ROUTE: UNKNOWN
  76. DICLOFENAC POTASSIUM [Suspect]
     Active Substance: DICLOFENAC POTASSIUM
     Dosage: UNK, ROUTE: UNKNOWN
  77. LEFLUNOMIDE [Suspect]
     Active Substance: LEFLUNOMIDE
     Indication: Rheumatoid arthritis
     Dosage: 10 MG, QD, ROUTE: UNKNOWN
  78. LEFLUNOMIDE [Suspect]
     Active Substance: LEFLUNOMIDE
     Dosage: UNK
  79. LEFLUNOMIDE [Suspect]
     Active Substance: LEFLUNOMIDE
     Dosage: UNK
  80. LEFLUNOMIDE [Suspect]
     Active Substance: LEFLUNOMIDE
     Dosage: UNK, ROUTE: UNKNOWN
  81. LEFLUNOMIDE [Suspect]
     Active Substance: LEFLUNOMIDE
     Dosage: 20 MG, ROUTE: UNKNOWN
  82. LEFLUNOMIDE [Suspect]
     Active Substance: LEFLUNOMIDE
     Dosage: 20 MG
  83. LEFLUNOMIDE [Suspect]
     Active Substance: LEFLUNOMIDE
     Dosage: 20 MG, QD, ROUTE: UNKNOWN
  84. LEFLUNOMIDE [Suspect]
     Active Substance: LEFLUNOMIDE
     Dosage: UNK, ROUTE: UNKNOWN

REACTIONS (26)
  - Lip dry [Fatal]
  - Gait inability [Not Recovered/Not Resolved]
  - Lower respiratory tract infection [Fatal]
  - Road traffic accident [Not Recovered/Not Resolved]
  - Dyspepsia [Not Recovered/Not Resolved]
  - Prescribed underdose [Not Recovered/Not Resolved]
  - Pulmonary fibrosis [Not Recovered/Not Resolved]
  - Musculoskeletal pain [Fatal]
  - Infection [Not Recovered/Not Resolved]
  - Oedema [Not Recovered/Not Resolved]
  - Lower limb fracture [Not Recovered/Not Resolved]
  - Prescribed overdose [Not Recovered/Not Resolved]
  - Incorrect route of product administration [Not Recovered/Not Resolved]
  - Lung disorder [Fatal]
  - Facet joint syndrome [Fatal]
  - Muscle injury [Fatal]
  - Dry mouth [Fatal]
  - Irritable bowel syndrome [Fatal]
  - Lower respiratory tract infection [Fatal]
  - Folliculitis [Fatal]
  - Abdominal pain upper [Fatal]
  - Hypercholesterolaemia [Fatal]
  - Hypoaesthesia [Fatal]
  - Inflammation [Fatal]
  - Joint swelling [Fatal]
  - Muscle spasms [Fatal]
